FAERS Safety Report 16258411 (Version 3)
Quarter: 2019Q4

REPORT INFORMATION
  Report Type: Report from Study
  Country: US (occurrence: US)
  Receive Date: 20190430
  Receipt Date: 20191015
  Transmission Date: 20200122
  Serious: Yes (Hospitalization, Other)
  Sender: FDA-Public Use
  Company Number: US-ACTELION-A-NJ2019-189631

PATIENT
  Sex: Female

DRUGS (2)
  1. UPTRAVI [Suspect]
     Active Substance: SELEXIPAG
     Indication: PULMONARY ARTERIAL HYPERTENSION
     Dosage: 1400 MCG BID
     Route: 048
     Dates: start: 20190426
  2. OPSUMIT [Suspect]
     Active Substance: MACITENTAN
     Indication: PULMONARY ARTERIAL HYPERTENSION
     Dosage: 10 MG, QD
     Route: 048
     Dates: start: 20190322

REACTIONS (6)
  - Pulmonary arterial hypertension [Unknown]
  - Chest pain [Unknown]
  - Benign neoplasm of skin [Unknown]
  - Fibromyalgia [Unknown]
  - Hospitalisation [Unknown]
  - Rash [Unknown]
